FAERS Safety Report 5018067-9 (Version None)
Quarter: 2006Q2

REPORT INFORMATION
  Report Type: 
  Country: None (occurrence: None)
  Receive Date: 20060530
  Receipt Date: 20060516
  Transmission Date: 20061013
  Serious: Yes (Other)
  Sender: FDA-Public Use
  Company Number: 2006032014

PATIENT
  Sex: Male

DRUGS (1)
  1. VIAGRA [Suspect]
     Indication: ERECTILE DYSFUNCTION
     Dosage: 100 MG (100 MG), ORAL
     Route: 048

REACTIONS (6)
  - BACK INJURY [None]
  - CONTUSION [None]
  - FALL [None]
  - MEMORY IMPAIRMENT [None]
  - PHOTOPSIA [None]
  - UPPER LIMB FRACTURE [None]
